FAERS Safety Report 9299327 (Version 1)
Quarter: 2013Q2

REPORT INFORMATION
  Report Type: Spontaneous
  Country: US (occurrence: US)
  Receive Date: 20130520
  Receipt Date: 20130520
  Transmission Date: 20140414
  Serious: Yes (Other)
  Sender: FDA-Public Use
  Company Number: US-GILEAD-2013-0074699

PATIENT
  Age: 59 Year
  Sex: Male

DRUGS (3)
  1. STRIBILD [Suspect]
     Indication: HIV INFECTION
     Dosage: 1 DF, QD
     Route: 048
     Dates: start: 20130118
  2. STRIBILD [Suspect]
     Indication: HEPATITIS B
  3. HELIXATE FS [Concomitant]
     Indication: FACTOR VIII DEFICIENCY
     Dosage: 2342 IU, UNK
     Route: 042
     Dates: start: 20130417

REACTIONS (1)
  - Haemorrhagic diathesis [Not Recovered/Not Resolved]
